FAERS Safety Report 24382159 (Version 8)
Quarter: 2025Q2

REPORT INFORMATION
  Report Type: Spontaneous
  Country: US (occurrence: US)
  Receive Date: 20241001
  Receipt Date: 20250528
  Transmission Date: 20250717
  Serious: No
  Sender: BRISTOL-MYERS SQUIBB COMPANY
  Company Number: US-BRISTOL-MYERS SQUIBB COMPANY-2024-154278

PATIENT
  Age: 79 Year
  Sex: Female

DRUGS (3)
  1. POMALYST [Suspect]
     Active Substance: POMALIDOMIDE
     Indication: Plasma cell myeloma
     Route: 048
  2. POMALYST [Suspect]
     Active Substance: POMALIDOMIDE
     Dosage: FREQUENCY: CYCLIC
     Route: 048
  3. POMALYST [Suspect]
     Active Substance: POMALIDOMIDE
     Dosage: STRENGTH:2MG
     Route: 048

REACTIONS (10)
  - Blood glucose fluctuation [Unknown]
  - Blood pressure fluctuation [Unknown]
  - Full blood count decreased [Unknown]
  - Fatigue [Unknown]
  - Night sweats [Unknown]
  - Product distribution issue [Unknown]
  - Therapy interrupted [Unknown]
  - Product dose omission issue [Unknown]
  - Dizziness [Unknown]
  - Cough [Unknown]
